FAERS Safety Report 4540702-X (Version None)
Quarter: 2004Q4

REPORT INFORMATION
  Report Type: 
  Country: None (occurrence: None)
  Receive Date: 20041229
  Receipt Date: 20041222
  Transmission Date: 20050328
  Serious: Yes (Hospitalization)
  Sender: FDA-Public Use
  Company Number: 200419776US

PATIENT
  Age: 48 Year
  Sex: Male

DRUGS (5)
  1. KETEK [Suspect]
     Dosage: DOSE: 400 (2 TABLETS)
     Route: 048
     Dates: start: 20041220, end: 20041220
  2. DIOVAN [Concomitant]
     Dosage: DOSE: UNK
  3. SEREVENT [Concomitant]
     Dosage: DOSE: UNK
  4. PAXIL [Concomitant]
     Dosage: DOSE: UNK
  5. SINGULAIR [Concomitant]
     Dosage: DOSE: UNK

REACTIONS (3)
  - DYSPNOEA [None]
  - RESPIRATORY FAILURE [None]
  - VISION BLURRED [None]
